FAERS Safety Report 7887757-2 (Version None)
Quarter: 2011Q4

REPORT INFORMATION
  Report Type: 
  Country: None (occurrence: None)
  Receive Date: 20111101
  Receipt Date: 20111019
  Transmission Date: 20120403
  Serious: Yes (Hospitalization)
  Sender: FDA-Public Use
  Company Number: USA/USA/11/0021670

PATIENT
  Age: 57 Year
  Sex: Female
  Weight: 79.7 kg

DRUGS (8)
  1. OXYCODONE HCL [Concomitant]
  2. CELEXA [Concomitant]
  3. SIMVASTATIN [Concomitant]
  4. ACYCLOVIR [Concomitant]
  5. AUGMENTIN [Suspect]
     Indication: OROPHARYNGEAL PAIN
     Dosage: ORAL
     Route: 048
  6. LISINOPRIL [Concomitant]
  7. EXEMESTANE [Concomitant]
  8. FENTANYL [Concomitant]

REACTIONS (3)
  - HYPERGLYCAEMIA [None]
  - NAUSEA [None]
  - VOMITING [None]
